FAERS Safety Report 9140568 (Version 2)
Quarter: 2013Q4

REPORT INFORMATION
  Report Type: Report from Study
  Country: DE (occurrence: DE)
  Receive Date: 20130305
  Receipt Date: 20131213
  Transmission Date: 20140711
  Serious: Yes (Hospitalization, Other)
  Sender: FDA-Public Use
  Company Number: DE-ROCHE-1193454

PATIENT
  Sex: Male
  Weight: 80 kg

DRUGS (7)
  1. RIBAVIRIN [Suspect]
     Indication: HEPATITIS C
     Route: 065
  2. PEG-INTERFERON ALFA 2A [Suspect]
     Indication: HEPATITIS C
     Route: 065
  3. MYCOPHENOLATE MOFETIL [Suspect]
     Indication: IMMUNOSUPPRESSION
     Route: 065
  4. TACROLIMUS [Suspect]
     Indication: IMMUNOSUPPRESSION
     Route: 065
  5. SIROLIMUS [Suspect]
     Indication: IMMUNOSUPPRESSION
     Route: 065
  6. CYCLOSPORINE A [Suspect]
     Indication: IMMUNOSUPPRESSION
     Route: 065
  7. TELAPREVIR [Suspect]
     Indication: HEPATITIS C
     Route: 065

REACTIONS (19)
  - Pneumonia bacterial [Unknown]
  - Enteritis infectious [Unknown]
  - Diabetes mellitus [Unknown]
  - Non-alcoholic steatohepatitis [Unknown]
  - Gout [Unknown]
  - Hepatic enzyme increased [Recovered/Resolved]
  - Cytomegalovirus infection [Recovered/Resolved]
  - Diarrhoea [Recovered/Resolved]
  - Urinary tract infection [Recovered/Resolved]
  - Clostridium difficile infection [Recovered/Resolved]
  - Gastroenteritis norovirus [Recovered/Resolved]
  - Anaemia [Unknown]
  - Leukopenia [Unknown]
  - Blood creatinine increased [Unknown]
  - Hepatitis cholestatic [Unknown]
  - Diabetes mellitus [Unknown]
  - Rash [Unknown]
  - Platelet count decreased [Unknown]
  - Skin reaction [Unknown]
